FAERS Safety Report 23736857 (Version 1)
Quarter: 2024Q2

REPORT INFORMATION
  Report Type: Spontaneous
  Country: US (occurrence: US)
  Receive Date: 20240412
  Receipt Date: 20240412
  Transmission Date: 20240716
  Serious: No
  Sender: FDA-Public Use
  Company Number: US-FENNEC PHARMACEUTICALS, INC.-2023FEN00014

PATIENT
  Age: 20 Year
  Sex: Female
  Weight: 73.469 kg

DRUGS (6)
  1. PEDMARK [Suspect]
     Active Substance: SODIUM THIOSULFATE
     Indication: Ototoxicity
     Dosage: 37 G
     Route: 042
     Dates: start: 20231218, end: 20231218
  2. CISPLATIN [Concomitant]
     Active Substance: CISPLATIN
     Dosage: 20 MG/M2, DAY 1-5
  3. BLEOMYCIN [Concomitant]
     Active Substance: BLEOMYCIN SULFATE
     Dosage: 30 DOSAGE UNITS, DAY 1, 8, 15
  4. ETOPOSIDE [Concomitant]
     Active Substance: ETOPOSIDE
     Dosage: 100 MG/M2, DAY 1-5
  5. OLANZAPINE [Concomitant]
     Active Substance: OLANZAPINE
     Dosage: 5 MG, AS NEEDED
  6. PROMETHAZINE [Concomitant]
     Active Substance: PROMETHAZINE HYDROCHLORIDE
     Dosage: 25 MG, AS NEEDED

REACTIONS (3)
  - Epistaxis [Recovered/Resolved]
  - Nausea [Recovered/Resolved]
  - Vomiting [Recovered/Resolved]

NARRATIVE: CASE EVENT DATE: 20231218
